FAERS Safety Report 12464915 (Version 1)
Quarter: 2016Q2

REPORT INFORMATION
  Report Type: Spontaneous
  Country: US (occurrence: US)
  Receive Date: 20160614
  Receipt Date: 20160614
  Transmission Date: 20160815
  Serious: Yes (Hospitalization)
  Sender: FDA-Public Use
  Company Number: US-BAYER-2016-111392

PATIENT
  Age: 56 Year
  Sex: Female
  Weight: 50.6 kg

DRUGS (4)
  1. PENTASA [Suspect]
     Active Substance: MESALAMINE
     Indication: LARGE INTESTINAL ULCER HAEMORRHAGE
     Dosage: 500 DF, QD
     Route: 048
     Dates: end: 20160305
  2. ALEVE [Suspect]
     Active Substance: NAPROXEN SODIUM
     Indication: ARTHRALGIA
     Dosage: 2 DF, BID
     Route: 048
     Dates: end: 201601
  3. PENTASA [Suspect]
     Active Substance: MESALAMINE
     Indication: LARGE INTESTINAL ULCER HAEMORRHAGE
     Dosage: 250 MG, QD
     Route: 048
     Dates: start: 201601, end: 20160305
  4. NATURES OWN THERAPEUTIC FORMULA [Concomitant]
     Indication: NUTRITIONAL SUPPLEMENTATION
     Dosage: 2 DF, BID, WITH FOOD AND WATER
     Route: 048
     Dates: start: 2016, end: 201601

REACTIONS (9)
  - Peripheral swelling [Recovered/Resolved]
  - Yellow skin [Recovered/Resolved]
  - Alopecia [Recovering/Resolving]
  - Abdominal distension [Recovered/Resolved]
  - Onychoclasis [Recovering/Resolving]
  - Haemoglobin decreased [None]
  - Dyspnoea [Recovered/Resolved]
  - Large intestinal ulcer haemorrhage [Recovered/Resolved]
  - Heart rate increased [Recovered/Resolved]

NARRATIVE: CASE EVENT DATE: 201601
